FAERS Safety Report 4737798-9 (Version None)
Quarter: 2005Q3

REPORT INFORMATION
  Report Type: 
  Country: None (occurrence: None)
  Receive Date: 20050805
  Receipt Date: 20050722
  Transmission Date: 20060218
  Serious: Yes (Other)
  Sender: FDA-Public Use
  Company Number: 200511395BWH

PATIENT
  Age: 79 Year
  Sex: Female

DRUGS (2)
  1. CIPRO [Suspect]
     Indication: BLADDER SPASM
     Dosage: 250 MG, QD, ORAL
     Route: 048
  2. CIPRO [Suspect]
     Indication: CYSTITIS
     Dosage: 250 MG, QD, ORAL
     Route: 048

REACTIONS (4)
  - CHEST PAIN [None]
  - HYPOAESTHESIA [None]
  - PAIN IN EXTREMITY [None]
  - TOOTH ABSCESS [None]
